FAERS Safety Report 18647918 (Version 1)
Quarter: 2020Q4

REPORT INFORMATION
  Report Type: Spontaneous
  Country: GB (occurrence: GB)
  Receive Date: 20201222
  Receipt Date: 20201222
  Transmission Date: 20210114
  Serious: Yes (Life-Threatening)
  Sender: FDA-Public Use
  Company Number: GB-TEVA-2020-GB-1859717

PATIENT
  Age: 53 Year
  Sex: Female
  Weight: 77 kg

DRUGS (1)
  1. NAPROXEN SODIUM. [Suspect]
     Active Substance: NAPROXEN SODIUM
     Dosage: 3 DOSAGE FORMS
     Route: 048

REACTIONS (2)
  - Angina pectoris [Recovered/Resolved with Sequelae]
  - Hiccups [Recovered/Resolved with Sequelae]

NARRATIVE: CASE EVENT DATE: 20201121
